FAERS Safety Report 10658542 (Version 3)
Quarter: 2015Q1

REPORT INFORMATION
  Report Type: Not Available
  Country: ES (occurrence: ES)
  Receive Date: 20141217
  Receipt Date: 20150316
  Transmission Date: 20150720
  Serious: Yes (Death, Other)
  Sender: FDA-Public Use
  Company Number: ES-CELGENE-144-21880-13073812

PATIENT

DRUGS (7)
  1. REVLIMID [Suspect]
     Active Substance: LENALIDOMIDE
     Indication: BURKITT^S LYMPHOMA
  2. RITUXIMAB [Concomitant]
     Active Substance: RITUXIMAB
     Indication: DIFFUSE LARGE B-CELL LYMPHOMA
     Route: 065
  3. METHYLPREDNISOLONE. [Concomitant]
     Active Substance: METHYLPREDNISOLONE
     Indication: DIFFUSE LARGE B-CELL LYMPHOMA
     Route: 065
  4. CYTARABINE. [Concomitant]
     Active Substance: CYTARABINE
     Indication: DIFFUSE LARGE B-CELL LYMPHOMA
     Route: 065
  5. CISPLATIN. [Concomitant]
     Active Substance: CISPLATIN
     Indication: DIFFUSE LARGE B-CELL LYMPHOMA
     Route: 065
  6. ETOPOSIDE. [Concomitant]
     Active Substance: ETOPOSIDE
     Indication: DIFFUSE LARGE B-CELL LYMPHOMA
     Route: 065
  7. REVLIMID [Suspect]
     Active Substance: LENALIDOMIDE
     Indication: DIFFUSE LARGE B-CELL LYMPHOMA
     Dosage: 5, 10, OR 15 MG
     Route: 048

REACTIONS (14)
  - Treatment failure [Unknown]
  - Nephropathy toxic [Recovered/Resolved]
  - Transplant failure [Not Recovered/Not Resolved]
  - Hypocalcaemia [Recovered/Resolved]
  - Infection [Unknown]
  - Escherichia bacteraemia [Recovered/Resolved]
  - Febrile neutropenia [Unknown]
  - Angioedema [Unknown]
  - Toxicity to various agents [Unknown]
  - Electrolyte imbalance [Recovered/Resolved]
  - Hypomagnesaemia [Recovered/Resolved]
  - Lymphoma [Fatal]
  - Neutropenia [Unknown]
  - Thrombocytopenia [Unknown]
